FAERS Safety Report 6147273-5 (Version None)
Quarter: 2009Q2

REPORT INFORMATION
  Report Type: 
  Country: None (occurrence: None)
  Receive Date: 20090408
  Receipt Date: 20090326
  Transmission Date: 20091009
  Serious: Yes (Death, Hospitalization)
  Sender: FDA-Public Use
  Company Number: FR-JNJFOC-20090102063

PATIENT
  Sex: Male
  Weight: 75 kg

DRUGS (5)
  1. NIZORAL [Suspect]
     Indication: ENDOCRINE DISORDER
     Route: 048
  2. NIZORAL [Suspect]
     Indication: BLOOD CORTISOL INCREASED
     Route: 048
  3. APROVEL [Concomitant]
     Route: 065
  4. FUROSEMIDE [Concomitant]
     Route: 065
  5. PERINDOPRIL ERBUMINE [Concomitant]
     Route: 065

REACTIONS (4)
  - ADRENAL DISORDER [None]
  - OFF LABEL USE [None]
  - OVERDOSE [None]
  - RENAL DISORDER [None]
